FAERS Safety Report 7128261-9 (Version None)
Quarter: 2010Q4

REPORT INFORMATION
  Report Type: 
  Country: None (occurrence: None)
  Receive Date: 20101130
  Receipt Date: 20101117
  Transmission Date: 20110411
  Serious: Yes (Other)
  Sender: FDA-Public Use
  Company Number: US-PFIZER INC-2010154335

PATIENT
  Sex: Female

DRUGS (1)
  1. ANBESOL [Suspect]
     Dosage: UNK
     Dates: start: 20101101

REACTIONS (1)
  - VIITH NERVE PARALYSIS [None]
